FAERS Safety Report 8823040 (Version 1)
Quarter: 2012Q4

REPORT INFORMATION
  Report Type: 
  Country: US (occurrence: US)
  Receive Date: 20121003
  Receipt Date: 20121003
  Transmission Date: 20130627
  Serious: Yes (Death, Life-Threatening)
  Sender: FDA-Public Use
  Company Number: US-ROCHE-1133264

PATIENT
  Sex: Male

DRUGS (8)
  1. RITUXAN [Suspect]
     Indication: B-CELL LYMPHOMA
     Route: 042
     Dates: start: 19990614
  2. RITUXAN [Suspect]
     Indication: NON-HODGKIN^S LYMPHOMA
     Route: 042
     Dates: start: 19990621
  3. RITUXAN [Suspect]
     Route: 042
     Dates: start: 19990628
  4. RITUXAN [Suspect]
     Route: 042
     Dates: start: 19990707
  5. BENADRYL [Concomitant]
     Route: 065
     Dates: start: 19990614
  6. BENADRYL [Concomitant]
     Route: 065
     Dates: start: 19990621
  7. BENADRYL [Concomitant]
     Route: 065
     Dates: start: 19990628
  8. BENADRYL [Concomitant]
     Route: 065
     Dates: start: 19990707

REACTIONS (3)
  - Death [Fatal]
  - Eye swelling [Unknown]
  - Disease recurrence [Unknown]
